FAERS Safety Report 14033496 (Version 2)
Quarter: 2017Q4

REPORT INFORMATION
  Report Type: Spontaneous
  Country: US (occurrence: US)
  Receive Date: 20171003
  Receipt Date: 20171004
  Transmission Date: 20180321
  Serious: Yes (Hospitalization, Other)
  Sender: FDA-Public Use
  Company Number: US-BRISTOL-MYERS SQUIBB COMPANY-BMS-2017-086375

PATIENT
  Sex: Female
  Weight: 78.92 kg

DRUGS (2)
  1. YERVOY [Suspect]
     Active Substance: IPILIMUMAB
     Indication: METASTATIC MALIGNANT MELANOMA
     Dosage: 790 MG, Q3WK
     Route: 042
     Dates: start: 20170801
  2. YERVOY [Suspect]
     Active Substance: IPILIMUMAB
     Indication: PRODUCT USED FOR UNKNOWN INDICATION
     Dosage: 790 MG, Q3WK
     Route: 042
     Dates: start: 20170822

REACTIONS (2)
  - Off label use [Unknown]
  - Hospitalisation [Unknown]
